FAERS Safety Report 4890071-0 (Version None)
Quarter: 2006Q1

REPORT INFORMATION
  Report Type: 
  Country: None (occurrence: None)
  Receive Date: 20060124
  Receipt Date: 20051130
  Transmission Date: 20060701
  Serious: Yes (Hospitalization, Disabling, Other)
  Sender: FDA-Public Use
  Company Number: US-BRISTOL-MYERS SQUIBB COMPANY-13200290

PATIENT
  Age: 57 Year
  Sex: Female
  Weight: 68 kg

DRUGS (12)
  1. TAXOL [Suspect]
     Indication: ENDOMETRIAL CANCER
     Route: 042
     Dates: start: 20051117, end: 20051117
  2. CARBOPLATIN [Suspect]
     Indication: ENDOMETRIAL CANCER
     Route: 042
     Dates: start: 20051117, end: 20051117
  3. KYTRIL [Concomitant]
     Indication: PREMEDICATION
     Route: 048
  4. PEPCID [Concomitant]
     Indication: PREMEDICATION
     Route: 048
  5. BENADRYL [Concomitant]
     Indication: PREMEDICATION
     Route: 042
  6. DECADRON [Concomitant]
     Indication: PREMEDICATION
     Route: 048
     Dates: start: 20051116, end: 20051117
  7. EMEND [Concomitant]
     Indication: PREMEDICATION
     Route: 048
     Dates: start: 20051117, end: 20051117
  8. ATENOLOL [Concomitant]
  9. LIPITOR [Concomitant]
  10. MULTIVITAMIN W/IRON [Concomitant]
  11. SENOKOT [Concomitant]
  12. DYAZIDE [Concomitant]

REACTIONS (5)
  - BURNING SENSATION [None]
  - DRUG ERUPTION [None]
  - EPIGASTRIC DISCOMFORT [None]
  - ORAL CANDIDIASIS [None]
  - PRURITUS [None]
